FAERS Safety Report 17661814 (Version 1)
Quarter: 2020Q2

REPORT INFORMATION
  Report Type: Spontaneous
  Country: DE (occurrence: DE)
  Receive Date: 20200413
  Receipt Date: 20200413
  Transmission Date: 20200713
  Serious: Yes (Hospitalization)
  Sender: FDA-Public Use
  Company Number: DE-TEVA-2020-DE-1222091

PATIENT
  Age: 10 Month
  Sex: Female
  Weight: 10 kg

DRUGS (4)
  1. DIAZEPAM 5MG [Suspect]
     Active Substance: DIAZEPAM
     Indication: SEIZURE
     Dosage: 5 MG,UNIQUE
     Route: 054
     Dates: start: 20200104
  2. AMOXICLAV 500MG/5ML [Concomitant]
     Indication: OTITIS MEDIA
     Dosage: 3.5-3.5-3.5
     Route: 048
     Dates: start: 20191223, end: 20200102
  3. DENTINOX [Concomitant]
     Indication: TEETHING
     Dates: start: 20200104, end: 20200104
  4. VITAMIN D 500IEOI [Concomitant]
     Indication: PROPHYLAXIS
     Dosage: 1 DOSAGE FORMS DAILY; 1-0-0-0
     Route: 048
     Dates: start: 20190307

REACTIONS (2)
  - Hypotonia [Recovered/Resolved]
  - Crying [Recovered/Resolved]

NARRATIVE: CASE EVENT DATE: 20200104
